FAERS Safety Report 15164995 (Version 17)
Quarter: 2021Q3

REPORT INFORMATION
  Report Type: Spontaneous
  Country: GB (occurrence: GB)
  Receive Date: 20180719
  Receipt Date: 20210927
  Transmission Date: 20211014
  Serious: Yes (Hospitalization, Other)
  Sender: FDA-Public Use
  Company Number: PHHY2016GB187024

PATIENT
  Age: 67 Year
  Sex: Female

DRUGS (25)
  1. CAPECITABINE. [Suspect]
     Active Substance: CAPECITABINE
     Indication: BREAST CANCER METASTATIC
     Dosage: 1000 MG, UNK (EVERY 4 DAYS)
     Route: 048
  2. CAPECITABINE. [Suspect]
     Active Substance: CAPECITABINE
     Indication: BREAST CANCER METASTATIC
     Dosage: TIME INTERVAL BETWEEN BEGINNING OF DRUG ADMINISTRATION AND END OF REACTION/EV
     Route: 048
     Dates: start: 20161122, end: 20161213
  3. CAPECITABINE. [Suspect]
     Active Substance: CAPECITABINE
     Route: 048
  4. PACLITAXEL. [Suspect]
     Active Substance: PACLITAXEL
     Dosage: 141 MG
     Route: 042
     Dates: start: 20161122
  5. EXEMESTANE. [Suspect]
     Active Substance: EXEMESTANE
     Indication: PRODUCT USED FOR UNKNOWN INDICATION
     Dosage: 25 MG, QD, (25 MG, 1X/DAY)
     Route: 048
     Dates: start: 20160531, end: 20160610
  6. HYALURONIDASE [Suspect]
     Active Substance: HYALURONIDASE
     Indication: HER2 POSITIVE BREAST CANCER
     Dosage: 600 MG, EVERY 3 WEEKS
     Route: 058
     Dates: start: 20151124, end: 20151221
  7. ADCAL?D3 [Concomitant]
     Active Substance: CALCIUM CARBONATE\CHOLECALCIFEROL
     Dosage: 2 G, QD
     Route: 048
     Dates: start: 20101221, end: 201511
  8. OMEPRAZOLE. [Concomitant]
     Active Substance: OMEPRAZOLE
     Route: 048
     Dates: start: 20170530
  9. TAMOXIFEN [Suspect]
     Active Substance: TAMOXIFEN
     Dosage: 600 MG, TIW
     Route: 048
     Dates: start: 20160712, end: 20160802
  10. TRASTUZUMAB. [Suspect]
     Active Substance: TRASTUZUMAB
     Dosage: 600 MG, Q3W (FORMULATION: INJECTION)
     Route: 058
     Dates: start: 20160531, end: 20161115
  11. CAPECITABINE. [Suspect]
     Active Substance: CAPECITABINE
     Dosage: TIME INTERVAL BETWEEN BEGINNING OF DRUG ADMINISTRATION AND END OF REACTION/EV
     Route: 048
     Dates: start: 20161213, end: 20161216
  12. EXEMESTANE. [Suspect]
     Active Substance: EXEMESTANE
     Dosage: UNK
     Route: 065
     Dates: start: 20160712
  13. OMEPRAZOLE. [Concomitant]
     Active Substance: OMEPRAZOLE
     Indication: PRODUCT USED FOR UNKNOWN INDICATION
     Dosage: 1 DF, QD
     Route: 048
  14. PACLITAXEL. [Suspect]
     Active Substance: PACLITAXEL
     Indication: HER2 POSITIVE BREAST CANCER
     Dosage: 141 MG (141 MILLIGRAM, QMO)
     Route: 042
     Dates: start: 20151124, end: 20151221
  15. PACLITAXEL. [Suspect]
     Active Substance: PACLITAXEL
     Dosage: 141 MG
     Route: 065
     Dates: start: 20161124
  16. TRASTUZUMAB. [Suspect]
     Active Substance: TRASTUZUMAB
     Indication: BREAST CANCER METASTATIC
     Dosage: 600 MG, Q3W (FORMULATION: INJECTION)
     Route: 058
     Dates: start: 20151124, end: 20151221
  17. ENOXAPARIN [Concomitant]
     Active Substance: ENOXAPARIN
     Indication: THROMBOSIS PROPHYLAXIS
     Dosage: (PREVENTION OF VENOUS THROMBOEMBOLISM)
     Route: 058
     Dates: start: 20160104, end: 20160106
  18. OMEPRAZOLE. [Concomitant]
     Active Substance: OMEPRAZOLE
     Dosage: 20 MG, QD, (20 MG, 1X/DAY)
     Route: 048
     Dates: start: 20170530
  19. ADALIMUMAB [Suspect]
     Active Substance: ADALIMUMAB
     Dosage: 40 MG, Q2W
     Route: 058
  20. HYALURONIDASE [Suspect]
     Active Substance: HYALURONIDASE
     Dosage: ON 15/NOV/2016, SHE RECEIVED MOST RECENT DOSE PRIOR TO AE/SAE
     Route: 058
     Dates: start: 20160531
  21. ADCAL?D3 [Concomitant]
     Active Substance: CALCIUM CARBONATE\CHOLECALCIFEROL
     Dosage: 1.5 G, QD
     Route: 048
     Dates: start: 20101221, end: 201511
  22. TAMOXIFEN [Suspect]
     Active Substance: TAMOXIFEN
     Indication: BREAST CANCER METASTATIC
     Dosage: 20 MG, QD
     Route: 048
     Dates: start: 20160712, end: 20160802
  23. ADALIMUMAB [Suspect]
     Active Substance: ADALIMUMAB
     Indication: PRODUCT USED FOR UNKNOWN INDICATION
     Dosage: 40 MG, Q2W
     Route: 058
     Dates: start: 20151124
  24. ENOXAPARIN [Concomitant]
     Active Substance: ENOXAPARIN
     Indication: EMBOLISM VENOUS
     Dosage: 20 MG, QD, (20 MG, 1X/DAY)
     Route: 058
     Dates: start: 20160106
  25. ADCAL?D3 [Concomitant]
     Active Substance: CALCIUM CARBONATE\CHOLECALCIFEROL
     Indication: PRODUCT USED FOR UNKNOWN INDICATION
     Dosage: 1 DF, QD
     Route: 048
     Dates: start: 20101221

REACTIONS (39)
  - C-reactive protein increased [Unknown]
  - Urinary tract infection [Unknown]
  - Fatigue [Recovered/Resolved]
  - White blood cell count increased [Recovered/Resolved]
  - Alanine aminotransferase increased [Recovered/Resolved]
  - Pain [Recovered/Resolved]
  - Hypoalbuminaemia [Recovered/Resolved]
  - Blood urea increased [Unknown]
  - Asthenia [Not Recovered/Not Resolved]
  - Vomiting [Recovered/Resolved]
  - Blood bilirubin increased [Recovered/Resolved]
  - Diarrhoea [Recovered/Resolved]
  - Vomiting [Recovered/Resolved]
  - Blood phosphorus increased [Recovered/Resolved]
  - Protein total decreased [Recovered/Resolved]
  - Vomiting [Recovered/Resolved]
  - Aspartate aminotransferase increased [Recovered/Resolved]
  - Sensory disturbance [Not Recovered/Not Resolved]
  - Hypertension [Recovered/Resolved with Sequelae]
  - Blood alkaline phosphatase increased [Recovered/Resolved]
  - Nausea [Unknown]
  - Dyspnoea [Recovered/Resolved]
  - Ascites [Not Recovered/Not Resolved]
  - Blood creatinine increased [Recovered/Resolved]
  - Nausea [Recovered/Resolved]
  - Dyspnoea [Recovered/Resolved]
  - Sensory loss [Not Recovered/Not Resolved]
  - Agitation [Recovered/Resolved]
  - Constipation [Recovered/Resolved]
  - Neutrophil count increased [Recovered/Resolved]
  - Hypernatraemia [Recovered/Resolved]
  - Balance disorder [Not Recovered/Not Resolved]
  - Blood glucose increased [Recovered/Resolved]
  - Lymphopenia [Recovered/Resolved with Sequelae]
  - Vomiting [Recovered/Resolved]
  - Cerebral haemorrhage [Recovered/Resolved]
  - Hypokalaemia [Recovered/Resolved]
  - Pyrexia [Recovered/Resolved]
  - Vomiting [Recovered/Resolved]

NARRATIVE: CASE EVENT DATE: 20151124
